FAERS Safety Report 8870856 (Version 1)
Quarter: 2012Q4

REPORT INFORMATION
  Report Type: 
  Country: DE (occurrence: DE)
  Receive Date: 20121029
  Receipt Date: 20121029
  Transmission Date: 20130627
  Serious: Yes (Death)
  Sender: FDA-Public Use
  Company Number: PHHY2012DE096551

PATIENT

DRUGS (1)
  1. GLIVEC [Suspect]

REACTIONS (1)
  - Death [Fatal]
